FAERS Safety Report 10128442 (Version 1)
Quarter: 2014Q2

REPORT INFORMATION
  Report Type: Spontaneous
  Country: MX (occurrence: MX)
  Receive Date: 20140428
  Receipt Date: 20140428
  Transmission Date: 20141212
  Serious: Yes (Other)
  Sender: FDA-Public Use
  Company Number: MX-ROCHE-1390323

PATIENT
  Age: 47 Year
  Sex: Female

DRUGS (7)
  1. XOLAIR [Suspect]
     Indication: ASTHMA
     Dosage: 2 (150 MG),
     Route: 058
     Dates: start: 201402
  2. XOLAIR [Suspect]
     Route: 058
     Dates: start: 201403
  3. SERETIDE [Concomitant]
     Route: 065
     Dates: start: 2012
  4. MONTELUKAST [Concomitant]
     Route: 065
     Dates: start: 2012
  5. SALBUTAMOL [Concomitant]
     Route: 065
     Dates: start: 2012
  6. EPINASTINE [Concomitant]
     Route: 065
     Dates: start: 2012
  7. THEOPHYLLINE [Concomitant]
     Route: 065
     Dates: start: 2012

REACTIONS (2)
  - Vertigo [Recovered/Resolved]
  - Syncope [Recovered/Resolved]
